FAERS Safety Report 7100950-1 (Version None)
Quarter: 2010Q4

REPORT INFORMATION
  Report Type: 
  Country: None (occurrence: None)
  Receive Date: 20101113
  Receipt Date: 20100414
  Transmission Date: 20110411
  Serious: No
  Sender: FDA-Public Use
  Company Number: US-ALLERGAN-1004265US

PATIENT
  Age: 58 Year
  Sex: Female
  Weight: 68.027 kg

DRUGS (4)
  1. BOTOX COSMETIC [Suspect]
     Indication: SKIN WRINKLING
     Dosage: UNK
     Route: 030
     Dates: start: 20080731, end: 20080731
  2. BOTOX COSMETIC [Suspect]
     Dosage: UNK
     Route: 030
     Dates: start: 20090210, end: 20090210
  3. BOTOX COSMETIC [Suspect]
     Dosage: UNK
     Route: 030
     Dates: start: 20090605, end: 20090605
  4. BOTOX COSMETIC [Suspect]
     Dosage: 14 UNITS, SINGLE
     Route: 030
     Dates: start: 20100324, end: 20100324

REACTIONS (2)
  - TEMPOROMANDIBULAR JOINT SYNDROME [None]
  - WRONG TECHNIQUE IN DRUG USAGE PROCESS [None]
